FAERS Safety Report 10390719 (Version 1)
Quarter: 2014Q3

REPORT INFORMATION
  Report Type: Spontaneous
  Country: GB (occurrence: None)
  Receive Date: 20140814
  Receipt Date: 20140814
  Transmission Date: 20150326
  Serious: Yes (Congenital Anomaly, Other)
  Sender: FDA-Public Use
  Company Number: FK201403212

PATIENT
  Sex: Male
  Weight: 3.48 kg

DRUGS (1)
  1. VALPROATE SODIUM. [Suspect]
     Active Substance: VALPROATE SODIUM
     Indication: EPILEPSY
     Dosage: MG
     Route: 064

REACTIONS (9)
  - Myopia [None]
  - Torticollis [None]
  - Hypospadias [None]
  - Foetal exposure during pregnancy [None]
  - Otitis media [None]
  - Coloboma [None]
  - Hooded prepuce [None]
  - Foetal anticonvulsant syndrome [None]
  - Inguinal hernia [None]
